FAERS Safety Report 16336159 (Version 3)
Quarter: 2019Q2

REPORT INFORMATION
  Report Type: Report from Study
  Country: DE (occurrence: DE)
  Receive Date: 20190521
  Receipt Date: 20190614
  Transmission Date: 20190711
  Serious: Yes (Hospitalization)
  Sender: FDA-Public Use
  Company Number: DE-ACCORD-128417

PATIENT
  Age: 74 Year
  Sex: Male
  Weight: 76 kg

DRUGS (5)
  1. BISOPROLOL [Concomitant]
     Active Substance: BISOPROLOL
     Indication: PRODUCT USED FOR UNKNOWN INDICATION
     Route: 048
  2. NINTEDANIB [Suspect]
     Active Substance: NINTEDANIB
     Indication: PRODUCT USED FOR UNKNOWN INDICATION
     Route: 048
  3. DOCETAXEL. [Suspect]
     Active Substance: DOCETAXEL
     Indication: LUNG ADENOCARCINOMA
     Dosage: DOSE PER APPLICATION AND DAILY DOSE OF DOCETAXEL: 75MG/M2 BODY SURFACE?AREA.
     Route: 042
     Dates: start: 20150825
  4. VARGATEF [Suspect]
     Active Substance: NINTEDANIB
     Indication: LUNG ADENOCARCINOMA
     Dosage: ALSO RECEIVED 100 MG(CAPSULE, SOFT AND TABLET) FOR 25 DAYS
     Route: 048
     Dates: start: 20150825, end: 20150918
  5. INNOHEP [Concomitant]
     Active Substance: TINZAPARIN SODIUM
     Indication: PRODUCT USED FOR UNKNOWN INDICATION
     Dosage: STRENGTH: 14000
     Route: 058

REACTIONS (3)
  - Deafness [Not Recovered/Not Resolved]
  - Wound infection [Not Recovered/Not Resolved]
  - Sudden hearing loss [Unknown]

NARRATIVE: CASE EVENT DATE: 20150921
